FAERS Safety Report 10084492 (Version 1)
Quarter: 2014Q2

REPORT INFORMATION
  Report Type: Spontaneous
  Country: IT (occurrence: IT)
  Receive Date: 20140417
  Receipt Date: 20140417
  Transmission Date: 20141212
  Serious: Yes (Other)
  Sender: FDA-Public Use
  Company Number: PHHY2014IT045601

PATIENT
  Age: 50 Year
  Sex: Male

DRUGS (2)
  1. CICLOSPORIN [Suspect]
     Indication: PSORIASIS
     Dosage: 100 MG, BID
  2. CICLOSPORIN [Suspect]
     Dosage: 50 MG, BID

REACTIONS (2)
  - Congestive cardiomyopathy [Unknown]
  - Dyspnoea [Unknown]
